FAERS Safety Report 8392385 (Version 4)
Quarter: 2013Q3

REPORT INFORMATION
  Report Type: Report from Study
  Country: BR (occurrence: BR)
  Receive Date: 20120206
  Receipt Date: 20130906
  Transmission Date: 20140515
  Serious: Yes (Hospitalization, Disabling, Other)
  Sender: FDA-Public Use
  Company Number: PHHY2012BR009029

PATIENT
  Age: 70 Year
  Sex: Male

DRUGS (10)
  1. TEGRETOL [Suspect]
     Indication: CONVULSION
     Dosage: 200 MG, ONE TABLET IN THE MORNING AND OTHER AT NIGHT
     Dates: start: 2008, end: 201001
  2. PANTOPRAZOLE [Concomitant]
     Indication: GASTROOESOPHAGEAL REFLUX DISEASE
     Dosage: 20 MG, QD
     Dates: start: 201001
  3. MEMANTINE HYDROCHLORIDE [Concomitant]
     Dosage: 10 MG, 1 TABLET IN THE MORNING AND 1 TABLET AT NIGHT
     Dates: start: 201001
  4. CITALOPRAM [Concomitant]
     Dosage: 10 MG, PER DAY
     Dates: start: 201001
  5. RISPERIDONE [Concomitant]
     Dosage: HALF A TABLE IN THE MORNING, 1 TABLET IN THE AFTERNOON AND 1 TABLET AT NIGHT
     Dates: start: 201001
  6. NEOZINE [Concomitant]
     Dosage: 16 DRP, DAILY (6 DROPS IN THE MORNING AND 10 DROPS AT NIGHT, DAILY)
     Dates: start: 201001
  7. SPIRIVA [Concomitant]
     Indication: EMPHYSEMA
     Dosage: 2.5 MG, QD
     Dates: start: 201006
  8. CLEXANE [Concomitant]
     Indication: THROMBOSIS PROPHYLAXIS
     Dosage: 20 MG, QD
     Dates: start: 201006
  9. ATROVENT [Concomitant]
     Indication: EMPHYSEMA
     Dosage: 20 DROPS ON SALINE SOLUTION 3 TIMES A DAY
  10. FLORINEF [Concomitant]
     Indication: EMPHYSEMA
     Dosage: 0.1 MG, QD

REACTIONS (9)
  - Fall [Unknown]
  - Head injury [Unknown]
  - Cerebrovascular accident [Recovering/Resolving]
  - Cerebral haemorrhage [Recovered/Resolved]
  - Haematoma [Recovered/Resolved]
  - Hemiplegia [Unknown]
  - Convulsion [Unknown]
  - Oral neoplasm [Recovered/Resolved]
  - Aphthous stomatitis [Unknown]
